FAERS Safety Report 5929492-3 (Version None)
Quarter: 2008Q4

REPORT INFORMATION
  Report Type: 
  Country: None (occurrence: None)
  Receive Date: 20081024
  Receipt Date: 20081017
  Transmission Date: 20090506
  Serious: Yes (Hospitalization)
  Sender: FDA-Public Use
  Company Number: A0738002A

PATIENT
  Age: 66 Year
  Sex: Male
  Weight: 104.5 kg

DRUGS (8)
  1. AVANDIA [Suspect]
     Indication: DIABETES MELLITUS
     Dosage: 4MG THREE TIMES PER DAY
     Route: 048
     Dates: start: 20010724, end: 20070329
  2. ACTOS [Concomitant]
     Dates: start: 20020716
  3. DIABETA [Concomitant]
     Dates: start: 20040704
  4. GLUCOTROL [Concomitant]
     Dates: start: 20010425, end: 20040101
  5. COREG [Concomitant]
     Dates: start: 20060723
  6. ZOCOR [Concomitant]
     Dates: start: 19990930
  7. VIAGRA [Concomitant]
  8. TOPROL-XL [Concomitant]

REACTIONS (6)
  - ARTERIOSCLEROSIS CORONARY ARTERY [None]
  - ASTHENIA [None]
  - HYPERCHOLESTEROLAEMIA [None]
  - HYPERTENSION [None]
  - MYOCARDIAL INFARCTION [None]
  - PAIN [None]
